FAERS Safety Report 5304977-1 (Version None)
Quarter: 2007Q2

REPORT INFORMATION
  Report Type: 
  Country: None (occurrence: None)
  Receive Date: 20070423
  Receipt Date: 20070411
  Transmission Date: 20071010
  Serious: Yes (Death, Other)
  Sender: FDA-Public Use
  Company Number: AR-PFIZER INC-2007024565

PATIENT
  Sex: Male

DRUGS (1)
  1. SUTENT [Suspect]
     Indication: RENAL CELL CARCINOMA STAGE UNSPECIFIED
     Route: 048
     Dates: start: 20070214, end: 20070224

REACTIONS (14)
  - ABNORMAL BEHAVIOUR [None]
  - BLINDNESS [None]
  - CONVULSION [None]
  - COUGH [None]
  - DISEASE PROGRESSION [None]
  - DYSPNOEA [None]
  - ENCEPHALOPATHY [None]
  - HAEMOPTYSIS [None]
  - HEMIPARESIS [None]
  - HEMIPLEGIA [None]
  - HYPOCALCAEMIA [None]
  - HYPONATRAEMIA [None]
  - PSYCHOMOTOR SEIZURES [None]
  - RENAL CELL CARCINOMA STAGE UNSPECIFIED [None]
